FAERS Safety Report 4709399-X (Version None)
Quarter: 2005Q3

REPORT INFORMATION
  Report Type: 
  Country: None (occurrence: None)
  Receive Date: 20050708
  Receipt Date: 20050606
  Transmission Date: 20060218
  Serious: Yes (Other)
  Sender: FDA-Public Use
  Company Number: PHBS2005JP08133

PATIENT
  Age: 19 Year
  Sex: Female

DRUGS (1)
  1. RITALIN [Suspect]
     Dosage: 100 MG, ONCE/SINGLE
     Route: 048
     Dates: start: 20050606, end: 20050606

REACTIONS (3)
  - ANXIETY [None]
  - MANIA [None]
  - TREMOR [None]
